FAERS Safety Report 6148465-1 (Version None)
Quarter: 2009Q2

REPORT INFORMATION
  Report Type: 
  Country: None (occurrence: None)
  Receive Date: 20090406
  Receipt Date: 20090323
  Transmission Date: 20091009
  Serious: Yes (Life-Threatening, Hospitalization)
  Sender: FDA-Public Use
  Company Number: VISP-NO-0903S-0139

PATIENT
  Age: 44 Year
  Sex: Male
  Weight: 116 kg

DRUGS (1)
  1. VISIPAQUE [Suspect]
     Indication: DRUG USE FOR UNKNOWN INDICATION
     Dosage: 150 ML, SINGLE DOSE,
     Dates: start: 20090220, end: 20090220

REACTIONS (1)
  - NEPHROPATHY TOXIC [None]
